FAERS Safety Report 10286687 (Version 1)
Quarter: 2014Q3

REPORT INFORMATION
  Report Type: Spontaneous
  Country: CN (occurrence: None)
  Receive Date: 20140707
  Receipt Date: 20140707
  Transmission Date: 20150326
  Serious: Yes (Death, Hospitalization)
  Sender: FDA-Public Use
  Company Number: CN-AIKEM-000625

PATIENT
  Age: 56 Year
  Sex: Male

DRUGS (2)
  1. PREDNISONE (PREDNISONE) [Suspect]
     Active Substance: PREDNISONE
     Indication: MICROSCOPIC POLYANGIITIS
     Route: 048
  2. MYCOPHENOLATE MOFETIL (MYCOPHENCLATE MOFETIL) [Suspect]
     Active Substance: MYCOPHENOLATE MOFETIL
     Indication: MICROSCOPIC POLYANGIITIS
     Dosage: 1.5000000G, 1DAY

REACTIONS (3)
  - Lymphopenia [None]
  - Pneumocystis jirovecii pneumonia [None]
  - Candida infection [None]
